FAERS Safety Report 5700118-7 (Version None)
Quarter: 2008Q2

REPORT INFORMATION
  Report Type: 
  Country: None (occurrence: None)
  Receive Date: 20080410
  Receipt Date: 20080327
  Transmission Date: 20081010
  Serious: Yes (Hospitalization)
  Sender: FDA-Public Use
  Company Number: FR-ELI_LILLY_AND_COMPANY-FR200803000082

PATIENT
  Age: 23 Year
  Sex: Female

DRUGS (5)
  1. CYMBALTA [Suspect]
     Indication: DEPRESSION
     Dosage: 60 MG, DAILY (1/D)
     Route: 048
     Dates: start: 20080201, end: 20080223
  2. CYMBALTA [Suspect]
     Dosage: 420 MG, DAILY (1/D)
     Route: 048
     Dates: start: 20080223, end: 20080223
  3. PROZAC [Suspect]
     Dosage: 300 MG, DAILY (1/D)
     Route: 048
     Dates: start: 20080223, end: 20080223
  4. NORSET [Concomitant]
     Dosage: 210 MG, DAILY (1/D)
     Route: 048
     Dates: start: 20080223, end: 20080223
  5. XANAX [Concomitant]
     Dosage: 5 MG, DAILY (1/D)
     Route: 048
     Dates: start: 20080223, end: 20080223

REACTIONS (3)
  - COMA [None]
  - INTENTIONAL OVERDOSE [None]
  - SUICIDE ATTEMPT [None]
